FAERS Safety Report 15479548 (Version 1)
Quarter: 2018Q4

REPORT INFORMATION
  Report Type: Spontaneous
  Country: GB (occurrence: GB)
  Receive Date: 20181009
  Receipt Date: 20181009
  Transmission Date: 20190205
  Serious: Yes (Other)
  Sender: FDA-Public Use
  Company Number: GB-BAUSCH-BL-2018-026855

PATIENT
  Age: 44 Year
  Sex: Female
  Weight: 72.11 kg

DRUGS (1)
  1. ALDARA [Suspect]
     Active Substance: IMIQUIMOD
     Indication: BASAL CELL CARCINOMA
     Dosage: SMALL AMOUNT APPLIED TOPICALLY
     Route: 061
     Dates: start: 20180415, end: 20180430

REACTIONS (5)
  - Oropharyngeal pain [Unknown]
  - Influenza like illness [Not Recovered/Not Resolved]
  - Malaise [Unknown]
  - Migraine [Unknown]
  - Lymphadenopathy [Unknown]

NARRATIVE: CASE EVENT DATE: 20180421
